APPROVED DRUG PRODUCT: ESCITALOPRAM OXALATE
Active Ingredient: ESCITALOPRAM OXALATE
Strength: EQ 5MG BASE/5ML
Dosage Form/Route: SOLUTION;ORAL
Application: A202221 | Product #001 | TE Code: AA
Applicant: HETERO LABS LTD UNIT III
Approved: Jun 12, 2012 | RLD: No | RS: Yes | Type: RX